FAERS Safety Report 7531827-5 (Version None)
Quarter: 2011Q2

REPORT INFORMATION
  Report Type: 
  Country: None (occurrence: None)
  Receive Date: 20110608
  Receipt Date: 20110602
  Transmission Date: 20111010
  Serious: Yes (Hospitalization, Other)
  Sender: FDA-Public Use
  Company Number: IE-PFIZER INC-2011119686

PATIENT
  Age: 68 Year
  Sex: Male

DRUGS (6)
  1. ASPIRIN [Concomitant]
     Dosage: 75 MG, 1X/DAY
     Route: 048
  2. FUCIDINE CAP [Suspect]
     Indication: INTERVERTEBRAL DISCITIS
     Dosage: 500 MG, 3X/DAY
     Route: 048
     Dates: start: 20091002, end: 20091007
  3. LIPITOR [Suspect]
     Indication: INTERVERTEBRAL DISCITIS
     Dosage: 40 MG, 1X/DAY
     Route: 048
     Dates: end: 20091007
  4. BISOPROLOL [Concomitant]
     Dosage: 2.5 MG, 1X/DAY
     Route: 048
  5. LENOXIN [Concomitant]
     Dosage: 250 UG, 1X/DAY
     Route: 048
  6. FLUCLOXACILLIN [Concomitant]
     Dosage: 1 G, 3X/DAY
     Route: 042

REACTIONS (2)
  - RHABDOMYOLYSIS [None]
  - MYOSITIS [None]
